FAERS Safety Report 7325839-4 (Version None)
Quarter: 2011Q1

REPORT INFORMATION
  Report Type: 
  Country: None (occurrence: None)
  Receive Date: 20110302
  Receipt Date: 20110215
  Transmission Date: 20110831
  Serious: Yes (Hospitalization)
  Sender: FDA-Public Use
  Company Number: JP-JNJFOC-20110205236

PATIENT
  Sex: Female

DRUGS (15)
  1. METHYLPREDNISOLONE SODIUM SUCCINATE [Concomitant]
     Indication: STATUS EPILEPTICUS
     Route: 065
  2. TOPIRAMATE [Suspect]
     Route: 048
  3. METHYLPREDNISOLONE SODIUM SUCCINATE [Concomitant]
     Route: 065
  4. TOPIRAMATE [Suspect]
     Route: 048
  5. DEPAKENE [Concomitant]
     Indication: LENNOX-GASTAUT SYNDROME
     Route: 048
  6. TOPIRAMATE [Suspect]
     Indication: LENNOX-GASTAUT SYNDROME
     Route: 048
  7. TOPIRAMATE [Suspect]
     Route: 048
  8. GABAPEN [Concomitant]
     Route: 048
  9. EXCEGRAN [Concomitant]
     Indication: LENNOX-GASTAUT SYNDROME
     Route: 048
  10. GABAPEN [Concomitant]
     Route: 048
  11. METHYLPREDNISOLONE SODIUM SUCCINATE [Concomitant]
     Route: 065
  12. GABAPEN [Concomitant]
     Route: 048
  13. MYSTAN [Concomitant]
     Indication: LENNOX-GASTAUT SYNDROME
     Route: 048
  14. GABAPEN [Concomitant]
     Indication: LENNOX-GASTAUT SYNDROME
     Route: 048
  15. GABAPEN [Concomitant]
     Route: 048

REACTIONS (1)
  - STATUS EPILEPTICUS [None]
